FAERS Safety Report 7910709-0 (Version None)
Quarter: 2011Q4

REPORT INFORMATION
  Report Type: 
  Country: None (occurrence: None)
  Receive Date: 20111111
  Receipt Date: 20111104
  Transmission Date: 20120403
  Serious: Yes (Death, Other)
  Sender: FDA-Public Use
  Company Number: US-AMGEN-USASP2011057896

PATIENT
  Sex: Male

DRUGS (3)
  1. LORTAB [Concomitant]
     Indication: PAIN
     Dosage: UNK
  2. ENBREL [Suspect]
     Dosage: UNK
     Dates: start: 20070401
  3. MORPHINE [Concomitant]
     Dosage: UNK

REACTIONS (8)
  - PLATELET DISORDER [None]
  - CARDIAC DISORDER [None]
  - PAIN [None]
  - SPINAL FRACTURE [None]
  - DEATH [None]
  - FALL [None]
  - BONE DEFORMITY [None]
  - INTESTINAL OBSTRUCTION [None]
